FAERS Safety Report 21633428 (Version 1)
Quarter: 2022Q4

REPORT INFORMATION
  Report Type: Spontaneous
  Country: GR (occurrence: GR)
  Receive Date: 20221123
  Receipt Date: 20221123
  Transmission Date: 20230112
  Serious: No
  Sender: FDA-Public Use
  Company Number: GR-PFIZER INC-202201304092

PATIENT
  Age: 68 Year
  Sex: Female

DRUGS (7)
  1. PAXLOVID [Suspect]
     Active Substance: NIRMATRELVIR\RITONAVIR
     Indication: COVID-19 treatment
     Dosage: UNK
     Dates: start: 20221107, end: 20221111
  2. ASPIRIN [Concomitant]
     Active Substance: ASPIRIN
     Indication: Sjogren^s syndrome
     Dosage: UNK
  3. ASPIRIN [Concomitant]
     Active Substance: ASPIRIN
     Indication: CREST syndrome
  4. ASPIRIN [Concomitant]
     Active Substance: ASPIRIN
     Indication: Raynaud^s phenomenon
  5. VITAMIN D NOS [Concomitant]
     Active Substance: VITAMIN D NOS
     Indication: Raynaud^s phenomenon
     Dosage: UNK
  6. VITAMIN D NOS [Concomitant]
     Active Substance: VITAMIN D NOS
     Indication: Sjogren^s syndrome
  7. VITAMIN D NOS [Concomitant]
     Active Substance: VITAMIN D NOS
     Indication: CREST syndrome

REACTIONS (8)
  - Erythema [Not Recovered/Not Resolved]
  - Face oedema [Unknown]
  - Pruritus [Unknown]
  - Feeling hot [Not Recovered/Not Resolved]
  - Dysgeusia [Unknown]
  - Tongue discomfort [Unknown]
  - Burn oesophageal [Unknown]
  - Incorrect product administration duration [Unknown]

NARRATIVE: CASE EVENT DATE: 20221101
